FAERS Safety Report 5409230-3 (Version None)
Quarter: 2007Q3

REPORT INFORMATION
  Report Type: 
  Country: None (occurrence: None)
  Receive Date: 20070807
  Receipt Date: 20070807
  Transmission Date: 20080115
  Serious: Yes (Hospitalization)
  Sender: FDA-Public Use
  Company Number: None

PATIENT
  Age: 82 Year
  Sex: Female

DRUGS (18)
  1. CLOFARABINE [Suspect]
     Indication: LYMPHOMA
     Dosage: 4MG/M2 QD X 5 IV
     Route: 042
     Dates: start: 20070709, end: 20070713
  2. ACYCLOVIR [Concomitant]
  3. ALBUTEROL [Concomitant]
  4. ALLOPURINOL [Concomitant]
  5. BACITRACIN [Concomitant]
  6. CEFEPIME [Concomitant]
  7. DIGOXIN [Concomitant]
  8. FLUCONAZOLE [Concomitant]
  9. LIPITOR [Concomitant]
  10. CLARITIN [Concomitant]
  11. ATIVAN [Concomitant]
  12. COZAAR [Concomitant]
  13. MEGACE [Concomitant]
  14. MULTI-VITAMIN [Concomitant]
  15. OMEPRAZOLE [Concomitant]
  16. COMPAZINE [Concomitant]
  17. BACTRIM [Concomitant]
  18. VANCOMYCIN [Concomitant]

REACTIONS (3)
  - ANAEMIA [None]
  - FEBRILE NEUTROPENIA [None]
  - THROMBOCYTOPENIA [None]
